FAERS Safety Report 11801047 (Version 1)
Quarter: 2015Q4

REPORT INFORMATION
  Report Type: Spontaneous
  Country: DE (occurrence: DE)
  Receive Date: 20151204
  Receipt Date: 20151204
  Transmission Date: 20160305
  Serious: Yes (Other)
  Sender: FDA-Public Use
  Company Number: DE-DRREDDYS-GER/GER/15/0054440

PATIENT
  Age: 36 Year
  Sex: Female
  Weight: 74 kg

DRUGS (5)
  1. MONURIL 3000 [Concomitant]
     Indication: URINARY TRACT INFECTION
     Route: 048
  2. CLOTRIMAZOLE. [Concomitant]
     Active Substance: CLOTRIMAZOLE
     Indication: VULVOVAGINAL MYCOTIC INFECTION
     Route: 067
  3. XANAFLU [Concomitant]
     Active Substance: INFLUENZA VIRUS VACCINE
     Indication: IMMUNISATION
     Route: 030
     Dates: start: 20141113, end: 20141113
  4. SERTRALINE [Suspect]
     Active Substance: SERTRALINE HYDROCHLORIDE
     Indication: DEPRESSION
     Route: 048
     Dates: start: 20140805, end: 20150512
  5. FEMIBION SCHWANGERSCHAFT 1 [Concomitant]
     Indication: PROPHYLAXIS OF NEURAL TUBE DEFECT
     Route: 048
     Dates: start: 20140805, end: 20150512

REACTIONS (5)
  - Obstructed labour [Unknown]
  - Premature rupture of membranes [Unknown]
  - Caesarean section [Unknown]
  - Cephalo-pelvic disproportion [Unknown]
  - Exposure during pregnancy [Unknown]
